FAERS Safety Report 19209851 (Version 1)
Quarter: 2021Q2

REPORT INFORMATION
  Report Type: Spontaneous
  Country: HU (occurrence: HU)
  Receive Date: 20210504
  Receipt Date: 20210504
  Transmission Date: 20210717
  Serious: Yes (Other)
  Sender: FDA-Public Use
  Company Number: HU-ROCHE-2819816

PATIENT
  Sex: Female

DRUGS (5)
  1. REVOLADE [Suspect]
     Active Substance: ELTROMBOPAG OLAMINE
     Route: 065
     Dates: start: 20210225, end: 20210309
  2. RITUXIMAB. [Suspect]
     Active Substance: RITUXIMAB
     Indication: IMMUNE THROMBOCYTOPENIA
     Dosage: UNK
     Route: 065
     Dates: end: 20201215
  3. REVOLADE [Suspect]
     Active Substance: ELTROMBOPAG OLAMINE
     Indication: IMMUNE THROMBOCYTOPENIA
     Route: 065
     Dates: start: 20210309
  4. DEXAMETHASONE. [Concomitant]
     Active Substance: DEXAMETHASONE
     Indication: IMMUNE THROMBOCYTOPENIA
     Dosage: 20 MG, (1 TO 4 DAYS)
     Route: 065
     Dates: start: 20201022
  5. MEDROL [Concomitant]
     Active Substance: METHYLPREDNISOLONE
     Indication: IMMUNE THROMBOCYTOPENIA
     Dosage: 2 MG
     Route: 065
     Dates: start: 20210325

REACTIONS (8)
  - Gingival atrophy [Unknown]
  - Product use in unapproved indication [Unknown]
  - Headache [Unknown]
  - Antinuclear antibody positive [Unknown]
  - Off label use [Unknown]
  - COVID-19 [Unknown]
  - Platelet count decreased [Unknown]
  - Epstein-Barr virus infection [Unknown]
